FAERS Safety Report 24718424 (Version 1)
Quarter: 2024Q4

REPORT INFORMATION
  Report Type: Spontaneous
  Country: US (occurrence: None)
  Receive Date: 20241210
  Receipt Date: 20241210
  Transmission Date: 20250115
  Serious: Yes (Hospitalization)
  Sender: Public
  Company Number: None

PATIENT
  Age: 76 Year
  Sex: Male

DRUGS (1)
  1. VALACYCLOVIR HYDROCHLORIDE [Suspect]
     Active Substance: VALACYCLOVIR HYDROCHLORIDE
     Indication: Product used for unknown indication
     Dates: start: 20220602, end: 20220610

REACTIONS (6)
  - Mental status changes [None]
  - Hallucination [None]
  - Diplopia [None]
  - Substance-induced psychotic disorder [None]
  - Therapy cessation [None]
  - Asthenia [None]

NARRATIVE: CASE EVENT DATE: 20220610
